FAERS Safety Report 8836633 (Version 1)
Quarter: 2012Q4

REPORT INFORMATION
  Report Type: Spontaneous
  Country: IN (occurrence: None)
  Receive Date: 20121009
  Receipt Date: 20121009
  Transmission Date: 20130627
  Serious: Yes (Disabling, Other)
  Sender: FDA-Public Use
  Company Number: IN-MACLEODS PHARMA-000006

PATIENT
  Age: 49 Year
  Sex: Male

DRUGS (1)
  1. LEVOFLOXACIN [Suspect]
     Indication: MAXILLARY SINUSITIS

REACTIONS (10)
  - Respiratory distress [None]
  - Dizziness [None]
  - Confusional state [None]
  - Optic neuritis [None]
  - Colour blindness [None]
  - Pain [None]
  - Eye pain [None]
  - Blindness unilateral [None]
  - Papillitis [None]
  - Splinter haemorrhages [None]
